FAERS Safety Report 4581055-0 (Version None)
Quarter: 2005Q1

REPORT INFORMATION
  Report Type: 
  Country: None (occurrence: None)
  Receive Date: 20050214
  Receipt Date: 20040727
  Transmission Date: 20050727
  Serious: No
  Sender: FDA-Public Use
  Company Number: 623076093

PATIENT
  Age: 24 Year
  Sex: Male
  Weight: 65.9 kg

DRUGS (7)
  1. LAMICTAL [Suspect]
     Indication: BIPOLAR DISORDER
     Dosage: 350MG PER DAY
     Route: 048
     Dates: start: 20030101
  2. ESKALITH [Concomitant]
     Indication: BIPOLAR DISORDER
     Route: 048
     Dates: start: 20010101
  3. KLONOPIN [Concomitant]
     Indication: BIPOLAR DISORDER
     Dosage: .5MG AT NIGHT
     Route: 048
     Dates: start: 20010101
  4. SEROQUEL [Concomitant]
     Indication: BIPOLAR DISORDER
     Dosage: 25MG AT NIGHT
     Route: 048
     Dates: start: 20030701, end: 20040501
  5. BENZOYL PEROXIDE [Concomitant]
     Indication: ACNE
     Route: 061
     Dates: start: 20031001
  6. RETIN-A [Concomitant]
     Indication: ACNE
     Route: 061
     Dates: start: 20031001
  7. AMOXICILLIN [Concomitant]
     Route: 048
     Dates: start: 20031201, end: 20040101

REACTIONS (3)
  - PHARYNGITIS STREPTOCOCCAL [None]
  - SKIN DISORDER [None]
  - TINEA VERSICOLOUR [None]
